FAERS Safety Report 7991172-0 (Version None)
Quarter: 2011Q4

REPORT INFORMATION
  Report Type: 
  Country: None (occurrence: None)
  Receive Date: 20111219
  Receipt Date: 20111207
  Transmission Date: 20120403
  Serious: Yes (Other)
  Sender: FDA-Public Use
  Company Number: US-BAYER-2011-116149

PATIENT
  Age: 30 Year
  Sex: Female

DRUGS (1)
  1. MIRENA [Suspect]
     Indication: CONTRACEPTION
     Dosage: 20 MCG/24HR, QD
     Route: 015
     Dates: start: 20100628, end: 20100814

REACTIONS (5)
  - MUSCLE SPASMS [None]
  - NAUSEA [None]
  - MALAISE [None]
  - PYREXIA [None]
  - HEADACHE [None]
